FAERS Safety Report 9553598 (Version 1)
Quarter: 2013Q3

REPORT INFORMATION
  Report Type: Spontaneous
  Country: US (occurrence: None)
  Receive Date: 20130816
  Receipt Date: 20130816
  Transmission Date: 20140515
  Serious: No
  Sender: FDA-Public Use
  Company Number: US-012282

PATIENT
  Age: 54 Year
  Sex: Female
  Weight: 64.41 kg

DRUGS (1)
  1. PICO-SALAX [Suspect]
     Indication: BOWEL PREPARATION
     Dosage: SPLIT DOSE METHOD

REACTIONS (1)
  - Retching [None]
